FAERS Safety Report 6460951-3 (Version None)
Quarter: 2009Q4

REPORT INFORMATION
  Report Type: 
  Country: None (occurrence: None)
  Receive Date: 20091120
  Receipt Date: 20091109
  Transmission Date: 20100525
  Serious: Yes (Hospitalization)
  Sender: FDA-Public Use
  Company Number: 2009AL007171

PATIENT
  Age: 20 Year
  Sex: Female
  Weight: 27 kg

DRUGS (1)
  1. METFORMIN HCL [Suspect]
     Indication: WEIGHT CONTROL

REACTIONS (21)
  - ABDOMINAL PAIN [None]
  - AMENORRHOEA [None]
  - ANOREXIA NERVOSA [None]
  - BLOOD CALCIUM DECREASED [None]
  - BLOOD CHLORIDE DECREASED [None]
  - BLOOD GLUCOSE DECREASED [None]
  - BLOOD MAGNESIUM DECREASED [None]
  - BLOOD PHOSPHORUS DECREASED [None]
  - BLOOD SODIUM DECREASED [None]
  - CACHEXIA [None]
  - CONFUSIONAL STATE [None]
  - DISSEMINATED INTRAVASCULAR COAGULATION [None]
  - DYSPNOEA [None]
  - HAEMODIALYSIS [None]
  - HYPERVENTILATION [None]
  - HYPOTENSION [None]
  - LACTIC ACIDOSIS [None]
  - POOR PERIPHERAL CIRCULATION [None]
  - REFUSAL OF TREATMENT BY PATIENT [None]
  - RENAL FAILURE ACUTE [None]
  - SELF-MEDICATION [None]
